FAERS Safety Report 22161759 (Version 3)
Quarter: 2023Q2

REPORT INFORMATION
  Report Type: Report from Study
  Country: CO (occurrence: CO)
  Receive Date: 20230331
  Receipt Date: 20230510
  Transmission Date: 20230722
  Serious: Yes (Hospitalization)
  Sender: FDA-Public Use
  Company Number: CO-ASTELLAS-2023US010022

PATIENT
  Age: 55 Year
  Sex: Male
  Weight: 59 kg

DRUGS (3)
  1. TACROLIMUS [Suspect]
     Active Substance: TACROLIMUS
     Indication: Renal transplant
     Route: 048
     Dates: start: 20210713
  2. TACROLIMUS [Suspect]
     Active Substance: TACROLIMUS
     Route: 048
  3. TACROLIMUS [Suspect]
     Active Substance: TACROLIMUS
     Route: 048

REACTIONS (4)
  - Abdominal pain upper [Recovering/Resolving]
  - Abdominal pain [Recovering/Resolving]
  - Gastritis [Unknown]
  - Abdominal distension [Recovering/Resolving]

NARRATIVE: CASE EVENT DATE: 20230318
